FAERS Safety Report 9288882 (Version 1)
Quarter: 2013Q2

REPORT INFORMATION
  Report Type: Spontaneous
  Country: US (occurrence: US)
  Receive Date: 20130514
  Receipt Date: 20130514
  Transmission Date: 20140414
  Serious: Yes (Hospitalization)
  Sender: FDA-Public Use
  Company Number: US-GLAXOSMITHKLINE-A0817905A

PATIENT
  Age: 57 Year
  Sex: Male
  Weight: 117.7 kg

DRUGS (1)
  1. AVANDIA [Suspect]
     Indication: DIABETES MELLITUS
     Dosage: 4MG TWICE PER DAY
     Route: 048
     Dates: start: 20010518, end: 20020216

REACTIONS (2)
  - Cardiac failure congestive [Not Recovered/Not Resolved]
  - Vision blurred [Unknown]
